FAERS Safety Report 26123756 (Version 1)
Quarter: 2025Q4

REPORT INFORMATION
  Report Type: Spontaneous
  Country: CA (occurrence: CA)
  Receive Date: 20251205
  Receipt Date: 20251205
  Transmission Date: 20260117
  Serious: Yes (Life-Threatening, Hospitalization, Other)
  Sender: ACCORD
  Company Number: None

PATIENT
  Age: 1 Year
  Sex: Female
  Weight: 13 kg

DRUGS (14)
  1. CARBOPLATIN [Suspect]
     Active Substance: CARBOPLATIN
     Indication: Bone marrow conditioning regimen
     Route: 042
  2. ETOPOSIDE [Suspect]
     Active Substance: ETOPOSIDE
     Indication: Bone marrow conditioning regimen
     Route: 042
  3. MELPHALAN [Suspect]
     Active Substance: MELPHALAN
     Indication: Bone marrow conditioning regimen
     Route: 042
  4. ACYCLOVIR [Concomitant]
     Active Substance: ACYCLOVIR
  5. CEFTAZIDIME [Concomitant]
     Active Substance: CEFTAZIDIME
     Dosage: POWDER FOR SOLUTION
  6. CHOLECALCIFEROL [Concomitant]
     Active Substance: CHOLECALCIFEROL
  7. DEXAMETHASONE [Concomitant]
     Active Substance: DEXAMETHASONE
     Dosage: LIQUID
     Route: 014
  8. FAMOTIDINE [Concomitant]
     Active Substance: FAMOTIDINE
  9. FLUCONAZOLE [Concomitant]
     Active Substance: FLUCONAZOLE
  10. OLANZAPINE [Concomitant]
     Active Substance: OLANZAPINE
  11. ONDANSETRON [Concomitant]
     Active Substance: ONDANSETRON
  12. POLYETHYLENE GLYCOL [Concomitant]
     Active Substance: POLYETHYLENE GLYCOL
  13. TRANEXAMIC ACID [Concomitant]
     Active Substance: TRANEXAMIC ACID
  14. URSODIOL [Concomitant]
     Active Substance: URSODIOL

REACTIONS (5)
  - Aplastic anaemia [Recovered/Resolved]
  - Thrombocytopenia [Recovered/Resolved]
  - Febrile neutropenia [Recovered/Resolved]
  - Mucosal inflammation [Recovered/Resolved]
  - Transfusion [Recovered/Resolved]
